FAERS Safety Report 18152438 (Version 1)
Quarter: 2020Q3

REPORT INFORMATION
  Report Type: Spontaneous
  Country: US (occurrence: US)
  Receive Date: 20200814
  Receipt Date: 20200814
  Transmission Date: 20201103
  Serious: No
  Sender: FDA-Public Use
  Company Number: US-TEVA-2020-US-1814706

PATIENT
  Age: 51 Year
  Sex: Female

DRUGS (5)
  1. ERY TAB [Concomitant]
  2. METHOTREXATE. [Concomitant]
     Active Substance: METHOTREXATE
  3. SYNTHROID [Concomitant]
     Active Substance: LEVOTHYROXINE SODIUM
  4. COPAXONE [Suspect]
     Active Substance: GLATIRAMER ACETATE
     Indication: MULTIPLE SCLEROSIS
     Route: 058
     Dates: start: 20150819
  5. CALCIUM 600 [Concomitant]
     Active Substance: CALCIUM

REACTIONS (2)
  - Migraine [Not Recovered/Not Resolved]
  - Dysarthria [Not Recovered/Not Resolved]

NARRATIVE: CASE EVENT DATE: 20200806
